FAERS Safety Report 16110473 (Version 4)
Quarter: 2019Q2

REPORT INFORMATION
  Report Type: Report from Study
  Country: US (occurrence: US)
  Receive Date: 20190325
  Receipt Date: 20190417
  Transmission Date: 20190711
  Serious: Yes (Hospitalization, Other)
  Sender: FDA-Public Use
  Company Number: US-GILEAD-2019-0397426

PATIENT
  Age: 64 Year
  Sex: Female

DRUGS (2)
  1. AMBRISENTAN [Suspect]
     Active Substance: AMBRISENTAN
     Indication: PULMONARY HYPERTENSION
     Dosage: 10 MG, QD
     Route: 065
     Dates: start: 20160324
  2. TYVASO [Concomitant]
     Active Substance: TREPROSTINIL

REACTIONS (4)
  - Product dose omission [Unknown]
  - Influenza [Unknown]
  - Asthenia [Unknown]
  - Pneumonia [Unknown]

NARRATIVE: CASE EVENT DATE: 20190318
